FAERS Safety Report 7298791-8 (Version None)
Quarter: 2011Q1

REPORT INFORMATION
  Report Type: 
  Country: None (occurrence: None)
  Receive Date: 20110217
  Receipt Date: 20110214
  Transmission Date: 20110831
  Serious: Yes (Hospitalization)
  Sender: FDA-Public Use
  Company Number: ES-PFIZER INC-2011031959

PATIENT
  Age: 13 Year
  Sex: Male

DRUGS (2)
  1. VORICONAZOLE [Suspect]
     Indication: ASPERGILLOSIS
     Dosage: 400 MG, 1X/DAY
     Route: 048
     Dates: start: 20100801
  2. ENTOCORD [Interacting]
     Indication: CHRONIC GRANULOMATOUS DISEASE
     Dosage: 9 MG, 1X/DAY
     Route: 048
     Dates: start: 20100801, end: 20101101

REACTIONS (3)
  - CUSHING'S SYNDROME [None]
  - DRUG INTERACTION [None]
  - SECONDARY HYPERTENSION [None]
